FAERS Safety Report 6003151-3 (Version None)
Quarter: 2008Q4

REPORT INFORMATION
  Report Type: 
  Country: None (occurrence: None)
  Receive Date: 20081216
  Receipt Date: 20081204
  Transmission Date: 20090506
  Serious: Yes (Hospitalization)
  Sender: FDA-Public Use
  Company Number: JP-JNJFOC-20081003411

PATIENT
  Sex: Female

DRUGS (12)
  1. TOPINA [Suspect]
     Indication: EPILEPSY
     Route: 048
  2. ALEVIATIN [Suspect]
     Route: 048
  3. ALEVIATIN [Suspect]
     Indication: EPILEPSY
     Route: 048
  4. HYDANTOL [Suspect]
     Route: 048
  5. HYDANTOL [Suspect]
     Indication: EPILEPSY
     Route: 048
  6. DEPAKENE [Concomitant]
     Route: 048
  7. DEPAKENE [Concomitant]
     Route: 048
  8. RISPERDAL [Concomitant]
     Route: 048
  9. ZYPREXA [Concomitant]
     Route: 048
  10. RESLIN [Concomitant]
     Route: 048
  11. ARTANE [Concomitant]
     Route: 048
  12. PURSENNID [Concomitant]
     Route: 048

REACTIONS (1)
  - IRRITABILITY [None]
